FAERS Safety Report 24304052 (Version 1)
Quarter: 2024Q3

REPORT INFORMATION
  Report Type: Spontaneous
  Country: MX (occurrence: MX)
  Receive Date: 20240910
  Receipt Date: 20240910
  Transmission Date: 20241016
  Serious: Yes (Other)
  Sender: INCYTE
  Company Number: MX-002147023-NVSC2024MX179602

PATIENT

DRUGS (1)
  1. RUXOLITINIB [Suspect]
     Active Substance: RUXOLITINIB
     Indication: Graft versus host disease
     Dosage: 15 MG, Q12H
     Route: 065

REACTIONS (1)
  - Seizure [Unknown]
